FAERS Safety Report 4288609-X (Version None)
Quarter: 2004Q1

REPORT INFORMATION
  Report Type: 
  Country: None (occurrence: None)
  Receive Date: 20040209
  Receipt Date: 20031225
  Transmission Date: 20041129
  Serious: Yes (Hospitalization)
  Sender: FDA-Public Use
  Company Number: JP-GLAXOSMITHKLINE-B0318577A

PATIENT
  Age: 62 Year
  Sex: Female

DRUGS (8)
  1. EPIVIR [Suspect]
     Indication: ACQUIRED IMMUNODEFICIENCY SYNDROME
     Dosage: 300MG PER DAY
     Route: 048
     Dates: start: 20031216, end: 20031226
  2. KALETRA [Suspect]
     Indication: ACQUIRED IMMUNODEFICIENCY SYNDROME
     Route: 048
     Dates: start: 20031216, end: 20031221
  3. STAVUDINE [Concomitant]
     Indication: ACQUIRED IMMUNODEFICIENCY SYNDROME
     Dosage: 60MG PER DAY
     Route: 048
     Dates: start: 20031216, end: 20031226
  4. MEPIRIZOLE [Concomitant]
     Indication: PNEUMOCYSTIS CARINII PNEUMONIA
     Dosage: 300MG PER DAY
     Route: 048
     Dates: start: 20031208
  5. RISPERIDONE [Concomitant]
     Indication: PERSECUTORY DELUSION
     Route: 048
     Dates: start: 20031117, end: 20031215
  6. LORAZEPAM [Concomitant]
     Indication: PERSECUTORY DELUSION
     Dosage: .5MG PER DAY
     Route: 048
     Dates: start: 20031205
  7. SUCRALFATE [Concomitant]
     Dosage: 3G PER DAY
     Route: 048
     Dates: start: 20031119
  8. MAGNESIUM OXIDE [Concomitant]
     Indication: CONSTIPATION
     Dosage: 750MG PER DAY
     Route: 048
     Dates: start: 20031115

REACTIONS (3)
  - ATRIOVENTRICULAR BLOCK COMPLETE [None]
  - BLOOD PRESSURE DECREASED [None]
  - HEART RATE DECREASED [None]
